FAERS Safety Report 4754451-6 (Version None)
Quarter: 2005Q3

REPORT INFORMATION
  Report Type: 
  Country: None (occurrence: None)
  Receive Date: 20050826
  Receipt Date: 20030227
  Transmission Date: 20060218
  Serious: Yes (Other)
  Sender: FDA-Public Use
  Company Number: KII-2003-0014537

PATIENT
  Age: 35 Year
  Sex: Male

DRUGS (2)
  1. OXYCONTIN [Suspect]
     Dosage: 20 MG
  2. HYDROCODONE 10MG/APAP 500 MG TABLETS [Suspect]

REACTIONS (1)
  - DRUG ABUSER [None]
